FAERS Safety Report 8054079-9 (Version None)
Quarter: 2012Q1

REPORT INFORMATION
  Report Type: 
  Country: None (occurrence: None)
  Receive Date: 20120118
  Receipt Date: 20120112
  Transmission Date: 20120608
  Serious: Yes (Hospitalization)
  Sender: FDA-Public Use
  Company Number: GB-AMGEN-GBRCT2011066180

PATIENT
  Age: 75 Year
  Sex: Female

DRUGS (9)
  1. HERCEPTIN [Concomitant]
     Dosage: 420 MG, Q3WK
     Route: 042
     Dates: start: 20111111
  2. TEMAZEPAM [Concomitant]
     Dosage: 10 MG, PRN
     Route: 048
     Dates: start: 20110801
  3. BLINDED DENOSUMAB [Suspect]
     Indication: BREAST CANCER
     Dosage: UNK UNK, Q3WK
     Route: 058
     Dates: start: 20110601
  4. METOCLOPRAMIDE [Concomitant]
     Dosage: 10 MG, QD
     Route: 048
     Dates: start: 20110602
  5. DIFFLAM [Concomitant]
     Dosage: 10 UNK, PRN
     Route: 048
     Dates: start: 20110801
  6. LANSOPRAZOLE [Concomitant]
     Dosage: 15 MG, PRN
     Route: 048
     Dates: start: 20030523
  7. BLINDED PLACEBO [Suspect]
     Indication: BREAST CANCER
     Dosage: UNK UNK, Q3WK
     Route: 058
     Dates: start: 20110601
  8. RANITIDINE [Concomitant]
     Dosage: 150 MG, BID
     Route: 048
     Dates: start: 20101027
  9. TAXOTERE [Concomitant]
     Dosage: UNK UNK, Q3WK
     Route: 042
     Dates: start: 20110803, end: 20110914

REACTIONS (2)
  - FACIAL BONES FRACTURE [None]
  - RADIUS FRACTURE [None]
